FAERS Safety Report 9491092 (Version 2)
Quarter: 2013Q3

REPORT INFORMATION
  Report Type: Report from Study
  Country: CA (occurrence: CA)
  Receive Date: 20130830
  Receipt Date: 20130830
  Transmission Date: 20140515
  Serious: Yes (Other)
  Sender: FDA-Public Use
  Company Number: CA-ROCHE-1267898

PATIENT
  Sex: Female
  Weight: 81 kg

DRUGS (17)
  1. RAMIPRIL [Concomitant]
  2. CRESTOR [Concomitant]
  3. EFFEXOR [Concomitant]
  4. OMEGA 3 [Concomitant]
  5. VITAMIN C [Concomitant]
  6. TYLENOL [Concomitant]
  7. COLD MEDICATION (UNK INGREDIENTS) [Concomitant]
  8. ACTEMRA [Suspect]
     Indication: RHEUMATOID ARTHRITIS
     Route: 042
     Dates: start: 20100827
  9. ACTEMRA [Suspect]
     Route: 042
     Dates: start: 20100929
  10. ACTEMRA [Suspect]
     Route: 042
     Dates: start: 20110728
  11. ACTEMRA [Suspect]
     Route: 042
     Dates: start: 20120628
  12. ACTEMRA [Suspect]
     Route: 042
     Dates: start: 20130528
  13. METHOTREXATE [Concomitant]
  14. PREDNISONE [Concomitant]
  15. CELEBREX [Concomitant]
  16. FOLIC ACID [Concomitant]
  17. METFORMIN [Concomitant]

REACTIONS (1)
  - Musculoskeletal disorder [Not Recovered/Not Resolved]
